FAERS Safety Report 6893018-0 (Version None)
Quarter: 2010Q3

REPORT INFORMATION
  Report Type: 
  Country: None (occurrence: None)
  Receive Date: 20100731
  Receipt Date: 20090127
  Transmission Date: 20110219
  Serious: No
  Sender: FDA-Public Use
  Company Number: US-PFIZER INC-2008153131

PATIENT
  Age: 49 Year
  Sex: Male
  Weight: 74.8 kg

DRUGS (2)
  1. NORVASC [Suspect]
     Indication: HYPERTENSION
     Dosage: 5 MG, 1X/DAY
     Dates: start: 20080601
  2. DRUG, UNSPECIFIED [Concomitant]

REACTIONS (3)
  - DRUG INEFFECTIVE [None]
  - ECZEMA [None]
  - PSORIASIS [None]
